APPROVED DRUG PRODUCT: CEFADYL
Active Ingredient: CEPHAPIRIN SODIUM
Strength: EQ 2GM BASE/VIAL
Dosage Form/Route: INJECTABLE;INJECTION
Application: A062724 | Product #002
Applicant: APOTHECON INC DIV BRISTOL MYERS SQUIBB
Approved: Dec 23, 1986 | RLD: No | RS: No | Type: DISCN